FAERS Safety Report 14324457 (Version 1)
Quarter: 2017Q4

REPORT INFORMATION
  Report Type: Spontaneous
  Country: US (occurrence: US)
  Receive Date: 20171226
  Receipt Date: 20171226
  Transmission Date: 20180321
  Serious: Yes (Death, Hospitalization, Other)
  Sender: FDA-Public Use
  Company Number: US-AUROBINDO-AUR-APL-2017-45610

PATIENT
  Age: 74 Year
  Sex: Female

DRUGS (1)
  1. PREDNISONE. [Suspect]
     Active Substance: PREDNISONE
     Indication: SCLERODERMA
     Dosage: UNK
     Route: 048

REACTIONS (7)
  - Septic shock [Unknown]
  - Klebsiella bacteraemia [Unknown]
  - Respiratory distress [Unknown]
  - Cardiac arrest [Fatal]
  - Respiratory failure [Unknown]
  - Strongyloidiasis [Unknown]
  - Fatigue [Unknown]
